FAERS Safety Report 8784619 (Version 1)
Quarter: 2012Q4

REPORT INFORMATION
  Report Type: Spontaneous
  Country: None (occurrence: None)
  Receive Date: 20120831
  Receipt Date: 20120921
  Transmission Date: 20130627
  Serious: Yes (Other)
  Sender: FDA-Public Use
  Company Number: AUR-APL-2012-03642

PATIENT
  Age: 53 Year
  Sex: Male
  Weight: 72 kg

DRUGS (8)
  1. RAMIPRIL [Suspect]
     Indication: DRUG USE FOR UNKNOWN INDICATION
  2. ASPIRIN [Concomitant]
  3. ATORVASTATIN (ATORVASTATIN) [Concomitant]
  4. BISOPROLOL (BISOPROLOL) [Concomitant]
  5. CETIRIZINE (CETIRIZINE) [Concomitant]
  6. PERINDOPRIL (PERINDOPRIL) [Concomitant]
  7. PROCHLORPERAZINE MALEATE (PROCHLORPERAZINE MALEATE) [Concomitant]
  8. TERBINAFINE HYDROCHLORIDE (TERBINAFINE HYDROCHLORIDE) [Concomitant]

REACTIONS (3)
  - Angina unstable [None]
  - Product substitution issue [None]
  - Hypertension [None]
